FAERS Safety Report 19205728 (Version 1)
Quarter: 2021Q2

REPORT INFORMATION
  Report Type: Spontaneous
  Country: US (occurrence: US)
  Receive Date: 20210503
  Receipt Date: 20210503
  Transmission Date: 20210717
  Serious: No
  Sender: FDA-Public Use
  Company Number: US-FARMAPROD-202102-0270

PATIENT
  Sex: Female
  Weight: 77.18 kg

DRUGS (16)
  1. VITAMIN E [Concomitant]
     Active Substance: .ALPHA.-TOCOPHEROL
  2. VITAMINE C [Concomitant]
     Active Substance: ASCORBIC ACID
  3. ATORVASTATIN CALCIUM. [Concomitant]
     Active Substance: ATORVASTATIN CALCIUM
  4. IRON [Concomitant]
     Active Substance: IRON
     Dosage: 159 (45) MG EXTENDED RELEASE TABLET
  5. ZINC. [Concomitant]
     Active Substance: ZINC
  6. ASPIRIN. [Concomitant]
     Active Substance: ASPIRIN
  7. VITAMIN K [Concomitant]
     Active Substance: PHYTONADIONE
  8. VITAMIN D2 [Concomitant]
     Active Substance: ERGOCALCIFEROL
  9. CINNAMON. [Concomitant]
     Active Substance: CINNAMON
  10. UBIQUINOL [Concomitant]
     Active Substance: UBIQUINOL
  11. OXERVATE [Suspect]
     Active Substance: CENEGERMIN-BKBJ
     Indication: NEUROTROPHIC KERATOPATHY
     Route: 047
     Dates: start: 20210215
  12. BIOTIN [Concomitant]
     Active Substance: BIOTIN
  13. VAGIFEM [Concomitant]
     Active Substance: ESTRADIOL
  14. ESCITALOPRAM OXALATE. [Concomitant]
     Active Substance: ESCITALOPRAM OXALATE
  15. VITAMINE B1 [Concomitant]
     Active Substance: THIAMINE HYDROCHLORIDE
  16. ALLEGRA D?12 HOUR [Concomitant]
     Active Substance: FEXOFENADINE HYDROCHLORIDE\PSEUDOEPHEDRINE HYDROCHLORIDE

REACTIONS (3)
  - Eye pain [Unknown]
  - Vision blurred [Unknown]
  - Photophobia [Unknown]
